FAERS Safety Report 5277595-1 (Version None)
Quarter: 2007Q1

REPORT INFORMATION
  Report Type: 
  Country: None (occurrence: None)
  Receive Date: 20070327
  Receipt Date: 20070315
  Transmission Date: 20070707
  Serious: Yes (Other)
  Sender: FDA-Public Use
  Company Number: DE-SHR-DE-2007-009903

PATIENT
  Age: 52 Year
  Sex: Male
  Weight: 80 kg

DRUGS (4)
  1. SOTALOL HYDROCHLORIDE [Suspect]
     Route: 048
  2. SOTALOL HYDROCHLORIDE [Suspect]
     Dosage: 1120 MG, 1 DOSE
     Route: 048
     Dates: start: 20070315, end: 20070315
  3. STILNOX                                 /FRA/ [Suspect]
     Dosage: UNK, UNK
     Route: 048
  4. STILNOX                                 /FRA/ [Suspect]
     Dosage: 70 MG, 1 DOSE
     Route: 048
     Dates: start: 20070315, end: 20070315

REACTIONS (3)
  - INTENTIONAL OVERDOSE [None]
  - SUICIDE ATTEMPT [None]
  - UNEVALUABLE EVENT [None]
